FAERS Safety Report 18873863 (Version 1)
Quarter: 2021Q1

REPORT INFORMATION
  Report Type: Report from Study
  Country: TR (occurrence: TR)
  Receive Date: 20210210
  Receipt Date: 20210210
  Transmission Date: 20210420
  Serious: Yes (Other)
  Sender: FDA-Public Use
  Company Number: TR-UCBSA-2021006165

PATIENT

DRUGS (1)
  1. LEVETIRACETAM. [Suspect]
     Active Substance: LEVETIRACETAM
     Indication: EPILEPSY
     Dosage: 10?71 MILLIGRAM/KILOGRAMS/DAY

REACTIONS (18)
  - Alopecia [Unknown]
  - Cognitive disorder [Unknown]
  - Dizziness [Unknown]
  - Decreased appetite [Unknown]
  - Suicidal ideation [Unknown]
  - Rash [Unknown]
  - Irritability [Unknown]
  - Tremor [Unknown]
  - Drug ineffective [Unknown]
  - Off label use [Unknown]
  - Somnolence [Unknown]
  - Learning disability [Unknown]
  - Fatigue [Unknown]
  - Encopresis [Unknown]
  - Psychomotor hyperactivity [Unknown]
  - Headache [Unknown]
  - Aggression [Unknown]
  - Insomnia [Unknown]
